FAERS Safety Report 16548701 (Version 1)
Quarter: 2019Q3

REPORT INFORMATION
  Report Type: Spontaneous
  Country: US (occurrence: US)
  Receive Date: 20190709
  Receipt Date: 20190709
  Transmission Date: 20191004
  Serious: No
  Sender: FDA-Public Use
  Company Number: US-009507513-1906USA008012

PATIENT
  Age: 27 Year
  Sex: Female

DRUGS (4)
  1. MENOPUR [Concomitant]
     Active Substance: FOLLITROPIN\LUTEINIZING HORMONE
     Indication: CONTROLLED OVARIAN STIMULATION
     Dosage: 75 INTERNATIONAL UNIT
  2. OVIDREL [Concomitant]
     Active Substance: CHORIOGONADOTROPIN ALFA
     Indication: CONTROLLED OVARIAN STIMULATION
     Dosage: 250 MICROGRAM ON TREATMENT DAY 18
  3. GANIRELIX ACETATE INJECTION [Suspect]
     Active Substance: GANIRELIX ACETATE
     Indication: CONTROLLED OVARIAN STIMULATION
     Dosage: 250 MICROGRAM, ON TREATMENT DAY 9
  4. GONAL-F [Concomitant]
     Active Substance: FOLLITROPIN
     Indication: CONTROLLED OVARIAN STIMULATION
     Dosage: 150 (UNITS NOT PROVIDED)

REACTIONS (1)
  - Inappropriate schedule of product administration [Unknown]
